FAERS Safety Report 10779873 (Version 2)
Quarter: 2015Q4

REPORT INFORMATION
  Report Type: Spontaneous
  Country: US (occurrence: US)
  Receive Date: 20150210
  Receipt Date: 20151204
  Transmission Date: 20160304
  Serious: Yes (Hospitalization)
  Sender: FDA-Public Use
  Company Number: US-JNJFOC-20150202541

PATIENT
  Age: 42 Year
  Sex: Female

DRUGS (4)
  1. XARELTO [Suspect]
     Active Substance: RIVAROXABAN
     Indication: ANKLE OPERATION
     Route: 048
     Dates: start: 20121002
  2. XARELTO [Suspect]
     Active Substance: RIVAROXABAN
     Indication: THROMBOSIS PROPHYLAXIS
     Route: 048
     Dates: start: 20121002
  3. KEFLEX [Concomitant]
     Active Substance: CEPHALEXIN
     Route: 065
  4. OXYCODONE [Concomitant]
     Active Substance: OXYCODONE
     Route: 065

REACTIONS (2)
  - Subdural haematoma [Unknown]
  - Haematoma [Unknown]

NARRATIVE: CASE EVENT DATE: 20120128
